FAERS Safety Report 22297283 (Version 2)
Quarter: 2023Q2

REPORT INFORMATION
  Report Type: Spontaneous
  Country: CA (occurrence: CA)
  Receive Date: 20230509
  Receipt Date: 20230611
  Transmission Date: 20230722
  Serious: Yes (Other)
  Sender: FDA-Public Use
  Company Number: CA-JNJFOC-20230508178

PATIENT
  Sex: Female
  Weight: 63 kg

DRUGS (9)
  1. REMICADE [Suspect]
     Active Substance: INFLIXIMAB
     Indication: Rheumatoid arthritis
     Route: 041
  2. CODEINE [Suspect]
     Active Substance: CODEINE
     Indication: Colonoscopy
     Route: 065
  3. DIAZEPAM [Suspect]
     Active Substance: DIAZEPAM
     Indication: Colonoscopy
     Route: 065
  4. ORENCIA [Suspect]
     Active Substance: ABATACEPT
     Indication: Rheumatoid arthritis
     Route: 065
  5. RITUXIMAB [Suspect]
     Active Substance: RITUXIMAB
     Indication: Rheumatoid arthritis
     Route: 042
  6. PANTOPRAZOLE [Concomitant]
     Active Substance: PANTOPRAZOLE
  7. PREDNISONE [Concomitant]
     Active Substance: PREDNISONE
  8. SULFASALAZINE [Concomitant]
     Active Substance: SULFASALAZINE
     Indication: Rheumatoid arthritis
  9. TYLENOL ARTHRITIS PAIN [Concomitant]
     Active Substance: ACETAMINOPHEN

REACTIONS (11)
  - Arthritis [Unknown]
  - Hypophagia [Unknown]
  - Ill-defined disorder [Unknown]
  - Lung disorder [Unknown]
  - Nail avulsion [Unknown]
  - Weight decreased [Unknown]
  - Alopecia [Unknown]
  - Psoriasis [Unknown]
  - Constipation [Unknown]
  - Drug hypersensitivity [Unknown]
  - Drug ineffective [Unknown]
